FAERS Safety Report 5951157-2 (Version None)
Quarter: 2008Q4

REPORT INFORMATION
  Report Type: 
  Country: None (occurrence: None)
  Receive Date: 20081113
  Receipt Date: 20081103
  Transmission Date: 20090506
  Serious: Yes (Life-Threatening, Hospitalization)
  Sender: FDA-Public Use
  Company Number: FR-JNJFOC-20070301811

PATIENT
  Sex: Female
  Weight: 56 kg

DRUGS (21)
  1. SPORANOX [Suspect]
     Route: 042
  2. SPORANOX [Suspect]
     Route: 042
  3. SPORANOX [Suspect]
     Indication: PROPHYLAXIS
     Route: 042
  4. SPORANOX [Suspect]
     Route: 048
  5. SPORANOX [Suspect]
     Route: 048
  6. CYCLOSPORINE [Concomitant]
     Route: 048
  7. VANCOMYCIN [Concomitant]
     Route: 065
  8. MORPHINE [Concomitant]
     Route: 065
  9. ZOVIRAX [Concomitant]
     Route: 065
  10. TIENAM [Concomitant]
     Route: 065
  11. MORPHINE SULFATE INJ [Concomitant]
     Route: 042
  12. ACYCLOVIR [Concomitant]
     Route: 048
  13. PIPERACILLIN SODIUM [Concomitant]
     Route: 042
  14. AMIKACIN SULFATE [Concomitant]
     Route: 042
  15. GRANISETRON HCL [Concomitant]
     Route: 042
  16. NEFOPAM HYDROCHLORIDE [Concomitant]
     Route: 042
  17. HYDROXYZINE HYDROCHLORIDE [Concomitant]
     Route: 048
  18. PROPACETAMOL HYDROCHLORIDE [Concomitant]
     Route: 048
  19. HEPARIN SODIUM [Concomitant]
     Route: 042
  20. ALBUMIN (HUMAN) [Concomitant]
     Route: 042
  21. NUTRITIONAL SUPPLEMENT [Concomitant]
     Route: 042

REACTIONS (4)
  - CARDIAC FAILURE [None]
  - LUNG DISORDER [None]
  - PLEURAL EFFUSION [None]
  - RESPIRATORY DISTRESS [None]
